FAERS Safety Report 9224651 (Version 2)
Quarter: 2013Q2

REPORT INFORMATION
  Report Type: Spontaneous
  Country: IT (occurrence: IT)
  Receive Date: 20130411
  Receipt Date: 20130508
  Transmission Date: 20140414
  Serious: Yes (Hospitalization)
  Sender: FDA-Public Use
  Company Number: IT-SANOFI-AVENTIS-2013SA035884

PATIENT
  Age: 71 Year
  Sex: Female

DRUGS (6)
  1. SOLOSA [Suspect]
     Indication: DIABETES MELLITUS
     Dosage: DOSE:1 UNIT(S)
     Route: 048
     Dates: start: 20110315, end: 20130315
  2. COMPETACT [Suspect]
     Indication: DIABETES MELLITUS
     Dosage: DOSE:1 UNIT(S)
     Route: 048
     Dates: start: 20120315, end: 20130315
  3. IRON [Concomitant]
  4. SIMVASTATIN [Concomitant]
  5. LANTUS [Concomitant]
     Dosage: STRENGTH: 100IU/ML DOSE:12 UNIT(S)
     Route: 058
  6. FOLIC ACID [Concomitant]

REACTIONS (1)
  - Pancreatitis acute [Recovered/Resolved]
